FAERS Safety Report 22605971 (Version 1)
Quarter: 2023Q2

REPORT INFORMATION
  Report Type: Spontaneous
  Country: US (occurrence: None)
  Receive Date: 20230615
  Receipt Date: 20230615
  Transmission Date: 20230721
  Serious: Yes (Other)
  Sender: FDA-Public Use
  Company Number: US-Hikma Pharmaceuticals USA Inc.-US-H14001-23-01989

PATIENT
  Sex: Female

DRUGS (1)
  1. AMIKACIN [Suspect]
     Active Substance: AMIKACIN
     Indication: Device related infection
     Dosage: UNKNOWN
     Route: 065

REACTIONS (2)
  - Enterobacter infection [Unknown]
  - Mycobacterium abscessus infection [Unknown]
